FAERS Safety Report 9302950 (Version 1)
Quarter: 2013Q2

REPORT INFORMATION
  Report Type: Spontaneous
  Country: DK (occurrence: DE)
  Receive Date: 20130522
  Receipt Date: 20130522
  Transmission Date: 20140414
  Serious: Yes (Other)
  Sender: FDA-Public Use
  Company Number: DE-FRI-1000045262

PATIENT
  Sex: Male

DRUGS (1)
  1. ESCITALOPRAM ORAL SOLUTION [Suspect]
     Dosage: 5 - 6 MG
     Route: 048

REACTIONS (3)
  - Urinary retention [Unknown]
  - Prostatic specific antigen increased [Unknown]
  - Restlessness [Unknown]
